FAERS Safety Report 6256137-8 (Version None)
Quarter: 2009Q3

REPORT INFORMATION
  Report Type: 
  Country: None (occurrence: None)
  Receive Date: 20090706
  Receipt Date: 20090623
  Transmission Date: 20100115
  Serious: Yes (Other)
  Sender: FDA-Public Use
  Company Number: PHHY2009CA24198

PATIENT

DRUGS (5)
  1. DIOVAN T30230++HY [Suspect]
     Indication: HYPERTENSION
     Route: 048
  2. NORVASC [Concomitant]
  3. ACE INHIBITOR NOS [Concomitant]
  4. DIURETICS [Concomitant]
  5. BETA BLOCKING AGENTS [Concomitant]

REACTIONS (4)
  - ANGINA PECTORIS [None]
  - DRUG INEFFECTIVE [None]
  - HIGH DENSITY LIPOPROTEIN INCREASED [None]
  - HYPERTENSION [None]
